FAERS Safety Report 19068787 (Version 1)
Quarter: 2021Q1

REPORT INFORMATION
  Report Type: Report from Study
  Country: US (occurrence: US)
  Receive Date: 20210329
  Receipt Date: 20210329
  Transmission Date: 20210420
  Serious: Yes (Hospitalization)
  Sender: FDA-Public Use
  Company Number: US-BAYER-2021-106722

PATIENT
  Age: 79 Year
  Sex: Female

DRUGS (2)
  1. STIVARGA [Suspect]
     Active Substance: REGORAFENIB
     Dosage: UNK
     Dates: start: 20210225
  2. STIVARGA [Suspect]
     Active Substance: REGORAFENIB
     Dosage: DAILY DOSE 160 MG FOR THREE WEEKS ON FOLLOWED BY ONE WEEK OFF SWALLOW TABLET WHOLE WITH WATER
     Route: 048
     Dates: start: 20210302, end: 20210315

REACTIONS (2)
  - Cerebral haemorrhage [Unknown]
  - Hospitalisation [Not Recovered/Not Resolved]

NARRATIVE: CASE EVENT DATE: 20210314
